FAERS Safety Report 5624855-8 (Version None)
Quarter: 2008Q1

REPORT INFORMATION
  Report Type: 
  Country: None (occurrence: None)
  Receive Date: 20080213
  Receipt Date: 20080208
  Transmission Date: 20080703
  Serious: Yes (Other)
  Sender: FDA-Public Use
  Company Number: JP-JNJFOC-20080202439

PATIENT
  Age: 44 Year
  Sex: Male

DRUGS (6)
  1. RISPERDAL [Suspect]
     Indication: RESTLESSNESS
     Route: 048
  2. RISPERDAL [Suspect]
     Indication: SCHIZOPHRENIA
     Route: 048
  3. ABILIFY [Suspect]
     Indication: DRUG USE FOR UNKNOWN INDICATION
     Route: 048
  4. VEGETAMIN-A [Concomitant]
  5. FLUNITRAZEPAM [Concomitant]
  6. DEPAS [Concomitant]

REACTIONS (4)
  - CONVULSION [None]
  - HYPONATRAEMIA [None]
  - THIRST [None]
  - WATER INTOXICATION [None]
